FAERS Safety Report 12126981 (Version 1)
Quarter: 2016Q1

REPORT INFORMATION
  Report Type: Spontaneous
  Country: FI (occurrence: FI)
  Receive Date: 20160229
  Receipt Date: 20160229
  Transmission Date: 20160526
  Serious: Yes (Hospitalization)
  Sender: FDA-Public Use
  Company Number: FI-009507513-1602FIN008534

PATIENT
  Age: 46 Year
  Sex: Female

DRUGS (6)
  1. CANDESARTAN [Concomitant]
     Active Substance: CANDESARTAN
     Indication: MIGRAINE PROPHYLAXIS
     Dosage: 8 MG, ONCE A DAY
     Route: 048
  2. RELERT [Concomitant]
     Active Substance: ELETRIPTAN HYDROBROMIDE
     Indication: MIGRAINE
     Dosage: UNK, AS NEEDED
  3. KLOTRIPTYL MITE [Concomitant]
     Indication: MIGRAINE PROPHYLAXIS
     Dosage: 1-2 TABLETS IN THE EVENINGS
     Route: 048
  4. ACETAMINOPHEN. [Concomitant]
     Active Substance: ACETAMINOPHEN
     Indication: MIGRAINE
     Dosage: UNK, AS NEEDED
  5. MAXALT [Suspect]
     Active Substance: RIZATRIPTAN BENZOATE
     Indication: MIGRAINE
     Dosage: 1-2 TABLETS AS NEEDED (FORMULATION: MELTS ON TONGUE)
     Route: 048
     Dates: start: 2012
  6. TOLVON [Concomitant]
     Active Substance: MIANSERIN
     Dosage: 60 MG, ONCE A DAY
     Route: 048

REACTIONS (2)
  - Migraine [Unknown]
  - Vulvovaginal mycotic infection [Unknown]

NARRATIVE: CASE EVENT DATE: 2013
